FAERS Safety Report 9028572 (Version 2)
Quarter: 2013Q1

REPORT INFORMATION
  Report Type: Spontaneous
  Country: US (occurrence: US)
  Receive Date: 20130124
  Receipt Date: 20130328
  Transmission Date: 20140127
  Serious: Yes (Death, Life-Threatening, Hospitalization, Disabling)
  Sender: FDA-Public Use
  Company Number: US-GLAXOSMITHKLINE-A1009493A

PATIENT
  Age: 56 Year
  Sex: Male

DRUGS (12)
  1. VOTRIENT [Suspect]
     Indication: MALIGNANT NEOPLASM OF RENAL PELVIS
     Dosage: 800MG PER DAY
     Route: 048
     Dates: start: 20121220, end: 201301
  2. OXYCODONE [Concomitant]
  3. HYDROMORPHONE HCL [Concomitant]
  4. SIMVASTATIN [Concomitant]
  5. XANAX [Concomitant]
  6. TYLENOL WITH CODEINE NO. 4 [Concomitant]
  7. PROZAC [Concomitant]
  8. NICOTINE [Concomitant]
  9. LOSARTAN [Concomitant]
  10. DEXAMETHASONE [Concomitant]
  11. ALBUTEROL SULFATE [Concomitant]
  12. ADVAIR [Concomitant]

REACTIONS (2)
  - Mechanical ventilation [Unknown]
  - Chronic obstructive pulmonary disease [Fatal]
